FAERS Safety Report 9511022 (Version 1)
Quarter: 2013Q3

REPORT INFORMATION
  Report Type: Spontaneous
  Country: US (occurrence: None)
  Receive Date: 20130905
  Receipt Date: 20130905
  Transmission Date: 20140515
  Serious: Yes (Other)
  Sender: FDA-Public Use
  Company Number: AUR-APL-2013-07272

PATIENT
  Age: 58 Year
  Sex: Female

DRUGS (2)
  1. LEVETIRACETAM [Suspect]
     Indication: PROPHYLAXIS
     Dosage: 1500 MG (750 MG, 2 IN 1 D), UNKNOWN
  2. LORAZEPAM [Concomitant]

REACTIONS (2)
  - Mania [None]
  - Paranoia [None]
